FAERS Safety Report 8372878-0 (Version None)
Quarter: 2012Q2

REPORT INFORMATION
  Report Type: 
  Country: None (occurrence: None)
  Receive Date: 20120521
  Receipt Date: 20120514
  Transmission Date: 20120825
  Serious: Yes (Other)
  Sender: FDA-Public Use
  Company Number: BR-ABBOTT-12P-020-0924964-00

PATIENT
  Sex: Male
  Weight: 76 kg

DRUGS (3)
  1. HUMIRA [Suspect]
     Indication: PSORIATIC ARTHROPATHY
     Dates: start: 20070528, end: 20120111
  2. OMEPRAZOLE [Concomitant]
     Indication: GASTRIC DISORDER
     Dosage: IN THE MORNING
     Route: 048
     Dates: start: 20090101
  3. HUMIRA [Suspect]
     Route: 058
     Dates: start: 20120401

REACTIONS (2)
  - ABDOMINAL HERNIA [None]
  - INGUINAL HERNIA [None]
